FAERS Safety Report 8835402 (Version 2)
Quarter: 2013Q1

REPORT INFORMATION
  Report Type: Spontaneous
  Country: US (occurrence: US)
  Receive Date: 20121011
  Receipt Date: 20130124
  Transmission Date: 20140127
  Serious: Yes (Death)
  Sender: FDA-Public Use
  Company Number: US-ROCHE-1138930

PATIENT
  Sex: Male
  Weight: 49.1 kg

DRUGS (2)
  1. PROTROPIN [Suspect]
     Indication: DWARFISM
     Route: 058
  2. PROTROPIN [Suspect]
     Indication: JUVENILE IDIOPATHIC ARTHRITIS

REACTIONS (1)
  - Death [Fatal]
